FAERS Safety Report 8344561-9 (Version None)
Quarter: 2012Q2

REPORT INFORMATION
  Report Type: 
  Country: None (occurrence: None)
  Receive Date: 20120508
  Receipt Date: 20120425
  Transmission Date: 20120825
  Serious: Yes (Other)
  Sender: FDA-Public Use
  Company Number: US-PERRIGO-12US001059

PATIENT
  Sex: Female
  Weight: 74.83 kg

DRUGS (8)
  1. LICE COMBO 866/9K1/0N8 PK 173 [Suspect]
     Indication: LICE INFESTATION
     Dosage: ONE APPLICATION, SINGLE
     Route: 061
     Dates: start: 20120128, end: 20120128
  2. BACLOFEN [Concomitant]
     Indication: MUSCLE RELAXANT THERAPY
     Dosage: UNK
     Route: 048
     Dates: start: 20111201
  3. TYLENOL W/ CODEINE [Concomitant]
     Indication: PAIN
     Dosage: PRN
     Route: 048
  4. LICE COMBO 866/9K1/0N8 PK 173 [Suspect]
     Dosage: ONE APPLICATION, SINGLE
     Route: 050
     Dates: start: 20120128, end: 20120128
  5. SERTRALINE HYDROCHLORIDE [Concomitant]
     Indication: HYPOTHYROIDISM
     Dosage: UNK
     Route: 048
  6. OMEPRAZOLE [Concomitant]
     Indication: DYSPEPSIA
     Dosage: UNK
     Route: 048
  7. AMLODIPINE [Concomitant]
     Indication: HYPERTENSION
     Dosage: UNK
     Route: 048
     Dates: start: 20090101
  8. PROPRANOLOL [Concomitant]
     Indication: HYPERTENSION
     Dosage: UNK
     Route: 048
     Dates: start: 20111001

REACTIONS (6)
  - ANXIETY [None]
  - APPLICATION SITE DISCOMFORT [None]
  - ALOPECIA [None]
  - TRICHORRHEXIS [None]
  - PRURITUS [None]
  - RASH GENERALISED [None]
